FAERS Safety Report 4821271-3 (Version None)
Quarter: 2005Q4

REPORT INFORMATION
  Report Type: 
  Country: None (occurrence: None)
  Receive Date: 20051104
  Receipt Date: 20051104
  Transmission Date: 20060501
  Serious: Yes (Hospitalization)
  Sender: FDA-Public Use
  Company Number: None

PATIENT
  Age: 23 Year
  Sex: Female
  Weight: 69.7 kg

DRUGS (4)
  1. TOPOTECAN GLAXOSMITHKLINE [Suspect]
     Indication: CERVIX CARCINOMA STAGE II
     Dosage: 0.15 MG/M2 CONT IV
     Route: 042
     Dates: start: 20051024
  2. CISPLATIN [Suspect]
     Indication: CERVIX CARCINOMA STAGE II
     Dosage: 30 MG/M2 D1 Q7D IV
     Route: 042
     Dates: start: 20051024
  3. BENADRYL [Concomitant]
  4. PERCOCET [Concomitant]

REACTIONS (6)
  - ASTHENIA [None]
  - BACK PAIN [None]
  - BLOOD CREATININE INCREASED [None]
  - FATIGUE [None]
  - HYDRONEPHROSIS [None]
  - RESPIRATORY RATE INCREASED [None]
